FAERS Safety Report 5738186-9 (Version None)
Quarter: 2008Q2

REPORT INFORMATION
  Report Type: 
  Country: None (occurrence: None)
  Receive Date: 20080514
  Receipt Date: 20080430
  Transmission Date: 20081010
  Serious: Yes (Hospitalization)
  Sender: FDA-Public Use
  Company Number: FR-GENENTECH-260689

PATIENT
  Sex: Female

DRUGS (2)
  1. HERCEPTIN [Suspect]
     Indication: BREAST CANCER
     Dosage: 8 MG/KG, UNKNOWN
     Route: 042
     Dates: start: 20070901, end: 20080204
  2. TAXOTERE [Concomitant]
     Indication: DRUG USE FOR UNKNOWN INDICATION
     Dates: start: 20070901

REACTIONS (3)
  - PETECHIAE [None]
  - PURPURA [None]
  - THROMBOCYTOPENIA [None]
